FAERS Safety Report 7381492-5 (Version None)
Quarter: 2011Q1

REPORT INFORMATION
  Report Type: 
  Country: None (occurrence: None)
  Receive Date: 20110329
  Receipt Date: 20110318
  Transmission Date: 20110831
  Serious: Yes (Hospitalization, Other)
  Sender: FDA-Public Use
  Company Number: CA-MERCK-1012USA01027

PATIENT
  Age: 66 Year
  Sex: Female
  Weight: 68 kg

DRUGS (3)
  1. SYNTHROID [Concomitant]
     Indication: THYROID DISORDER
     Dosage: 1 TABLET AT BEDTIME
     Route: 048
  2. IMOVANE [Concomitant]
     Indication: INSOMNIA
     Dosage: PRN
     Route: 065
  3. FOSAMAX PLUS D [Suspect]
     Indication: OSTEOPOROSIS
     Dosage: 70 MG/5600 IU, IN THE MORNING, 30 MINS BEFORE BREAKFAST WIHOUT MOVE WITH A CUP OF WATER
     Route: 048
     Dates: start: 20100324, end: 20100519

REACTIONS (16)
  - RASH MACULO-PAPULAR [None]
  - LIVER DISORDER [None]
  - BURNING SENSATION [None]
  - DRUG HYPERSENSITIVITY [None]
  - OROPHARYNGEAL PAIN [None]
  - EYE IRRITATION [None]
  - ALOPECIA [None]
  - ARTHRALGIA [None]
  - BRONCHIAL IRRITATION [None]
  - OESOPHAGEAL INJURY [None]
  - WOUND [None]
  - PYREXIA [None]
  - FATIGUE [None]
  - BLISTER [None]
  - DYSPNOEA [None]
  - COUGH [None]
